FAERS Safety Report 8898064 (Version 1)
Quarter: 2012Q4

REPORT INFORMATION
  Report Type: 
  Country: US (occurrence: US)
  Receive Date: 20121108
  Receipt Date: 20121108
  Transmission Date: 20130627
  Serious: No
  Sender: FDA-Public Use
  Company Number: US-AMGEN-USASP2012030643

PATIENT
  Sex: Female

DRUGS (6)
  1. ENBREL [Suspect]
     Indication: PRODUCT USED FOR UNKNOWN INDICATION
     Dosage: 50 mg, qwk
     Route: 058
  2. CELEXA                             /00582602/ [Concomitant]
     Dosage: 20 mg, UNK
  3. CALCIUM [Concomitant]
  4. VITAMIN D /00107901/ [Concomitant]
  5. FISH OIL [Concomitant]
  6. BIOTIN [Concomitant]
     Dosage: 5 mg, UNK

REACTIONS (2)
  - Injection site swelling [Unknown]
  - Injection site erythema [Unknown]
